FAERS Safety Report 5239126-1 (Version None)
Quarter: 2007Q1

REPORT INFORMATION
  Report Type: 
  Country: None (occurrence: None)
  Receive Date: 20070212
  Receipt Date: 20070126
  Transmission Date: 20070707
  Serious: Yes (Hospitalization)
  Sender: FDA-Public Use
  Company Number: 2007EU000252

PATIENT
  Age: 72 Year
  Sex: Male

DRUGS (12)
  1. FK506 (TACROLIMUS CAPSULES) [Suspect]
     Indication: RENAL TRANSPLANT
     Dosage: 2 MG,/D, ORAL
     Route: 048
     Dates: start: 20031007
  2. DACLIZUMAB (DACLIZUMAB) [Suspect]
     Indication: RENAL TRANSPLANT
     Dosage: 2 MG/KG, UID/QD, IV NOS
     Route: 042
     Dates: start: 20030923
  3. MYCOPHENOLATE MOFETIL [Suspect]
     Indication: RENAL TRANSPLANT
     Dosage: 200 MG, /D, ORAL
     Route: 048
     Dates: start: 20031007
  4. PREDNISOLONE [Suspect]
     Indication: RENAL TRANSPLANT
     Dosage: 10 MG, UID/D, ORAL
     Route: 048
     Dates: start: 20031007
  5. DILTIAZEM [Concomitant]
  6. ALLOPURINOL SODIUM [Concomitant]
  7. UNAT (TORASEMIDE SODIUM) [Concomitant]
  8. ALDACTONE [Concomitant]
  9. RAMIPRIL [Concomitant]
  10. ACTRAPID (INSULIN HUMAN) [Concomitant]
  11. PROTAPHANE (ISOPHANE INSULIN) [Concomitant]
  12. ENOXAPARIN SODIUM [Concomitant]

REACTIONS (1)
  - LEIOMYOSARCOMA [None]
